FAERS Safety Report 9687956 (Version 1)
Quarter: 2013Q4

REPORT INFORMATION
  Report Type: Spontaneous
  Country: CO (occurrence: CO)
  Receive Date: 20131114
  Receipt Date: 20131114
  Transmission Date: 20140711
  Serious: Yes (Hospitalization, Other)
  Sender: FDA-Public Use
  Company Number: PHHY2013CO129285

PATIENT
  Sex: Female

DRUGS (1)
  1. VOLTAREN T [Suspect]
     Dosage: 100 MG
     Route: 048

REACTIONS (1)
  - Nephropathy toxic [Recovered/Resolved]
